FAERS Safety Report 13127265 (Version 1)
Quarter: 2017Q1

REPORT INFORMATION
  Report Type: Spontaneous
  Country: CN (occurrence: CN)
  Receive Date: 20170118
  Receipt Date: 20170118
  Transmission Date: 20170428
  Serious: Yes (Other)
  Sender: FDA-Public Use
  Company Number: CN-BAYER-2017-008414

PATIENT
  Age: 65 Year
  Sex: Female

DRUGS (1)
  1. GLUCOBAY [Suspect]
     Active Substance: ACARBOSE
     Dosage: 50 MG, TID
     Route: 048

REACTIONS (3)
  - Hyperglycaemia [None]
  - Blood glucose increased [None]
  - Nasopharyngitis [None]

NARRATIVE: CASE EVENT DATE: 2016
